FAERS Safety Report 16779639 (Version 1)
Quarter: 2019Q3

REPORT INFORMATION
  Report Type: Spontaneous
  Country: GB (occurrence: GB)
  Receive Date: 20190906
  Receipt Date: 20190906
  Transmission Date: 20191005
  Serious: Yes (Other)
  Sender: FDA-Public Use
  Company Number: GB-TEVA-2019-GB-1102728

PATIENT
  Age: 81 Year
  Sex: Male
  Weight: 81.18 kg

DRUGS (3)
  1. VALSARTAN. [Concomitant]
     Active Substance: VALSARTAN
  2. RABEPRAZOLE [Concomitant]
     Active Substance: RABEPRAZOLE
  3. CIPROFLOXACIN HYDROCHLORIDE. [Suspect]
     Active Substance: CIPROFLOXACIN HYDROCHLORIDE
     Indication: BACTERIAL PROSTATITIS
     Dosage: 500MG/DAY/50DAYS
     Route: 048
     Dates: start: 20190109, end: 20190228

REACTIONS (4)
  - Pain [Not Recovered/Not Resolved]
  - Rash [Not Recovered/Not Resolved]
  - Arthralgia [Not Recovered/Not Resolved]
  - Tenosynovitis [Unknown]

NARRATIVE: CASE EVENT DATE: 20190117
